FAERS Safety Report 5699431-1 (Version None)
Quarter: 2008Q2

REPORT INFORMATION
  Report Type: 
  Country: None (occurrence: None)
  Receive Date: 20080407
  Receipt Date: 20080331
  Transmission Date: 20081010
  Serious: Yes (Other)
  Sender: FDA-Public Use
  Company Number: JPI-P-003300

PATIENT
  Age: 24 Year
  Sex: Male

DRUGS (4)
  1. XYREM [Suspect]
     Indication: CIRCADIAN RHYTHM SLEEP DISORDER
     Dosage: ORAL, 9 GM (3 GM, 3 IN 1 D), ORAL
     Route: 048
     Dates: end: 20080324
  2. XYREM [Suspect]
     Indication: CIRCADIAN RHYTHM SLEEP DISORDER
     Dosage: ORAL, 9 GM (3 GM, 3 IN 1 D), ORAL
     Route: 048
     Dates: start: 20080101
  3. LEVETIRACETAM [Concomitant]
  4. LAMOTRIGINE [Concomitant]

REACTIONS (1)
  - CONVULSION [None]
